FAERS Safety Report 8741655 (Version 3)
Quarter: 2012Q4

REPORT INFORMATION
  Report Type: Report from Study
  Country: US (occurrence: US)
  Receive Date: 20120824
  Receipt Date: 20121123
  Transmission Date: 20130627
  Serious: Yes (Other)
  Sender: FDA-Public Use
  Company Number: US-009507513-1208USA006678

PATIENT
  Age: 57 Year
  Sex: Male
  Weight: 87.75 kg

DRUGS (20)
  1. RIBAVIRIN [Suspect]
     Indication: CHRONIC HEPATITIS C
     Dosage: 600 mg, bid
     Route: 048
     Dates: start: 20120510
  2. RIBAVIRIN [Suspect]
     Dosage: 1000 mg, qd
     Route: 048
     Dates: start: 20120706, end: 20120722
  3. RIBAVIRIN [Suspect]
     Dosage: 800 mg, qd
     Dates: start: 20120723, end: 20120802
  4. RIBAVIRIN [Suspect]
     Dosage: 600 mg, qd
     Dates: start: 20120814
  5. RIBAVIRIN [Suspect]
     Dosage: 800mg,QD
     Dates: start: 20120831
  6. RIBAVIRIN [Suspect]
     Dosage: 1000mg, qd
     Dates: start: 20120914
  7. RIBAVIRIN [Suspect]
     Dosage: 1200 mg, qd
     Dates: start: 20120928
  8. RIBAVIRIN [Suspect]
     Dosage: 1000 mg, qd
     Dates: start: 20121008
  9. RIBAVIRIN [Suspect]
     Dosage: 800 mg, qd
     Dates: start: 20121015
  10. VICTRELIS [Suspect]
     Indication: CHRONIC HEPATITIS C
     Dosage: 800 mg, tid
     Route: 048
     Dates: start: 20120607
  11. PEG-INTRON [Suspect]
     Indication: CHRONIC HEPATITIS C
     Dosage: 150 Microgram, qw
     Route: 058
     Dates: start: 20120510
  12. ISENTRESS [Concomitant]
     Indication: HIV INFECTION
     Dosage: UNK, bid
     Route: 048
  13. TRUVADA [Concomitant]
     Indication: HIV INFECTION
     Dosage: UNK, qd
     Route: 048
  14. METFORMIN HYDROCHLORIDE [Concomitant]
     Indication: INSULIN RESISTANCE
     Dosage: UNK
     Route: 048
  15. FENOFIBRATE [Concomitant]
     Indication: HYPERLIPIDAEMIA
     Dosage: UNK, qd
     Route: 048
  16. LOSARTIN [Concomitant]
     Indication: HYPERTENSION
     Dosage: UNK, qd
     Route: 048
  17. VITAMINS (UNSPECIFIED) [Concomitant]
     Indication: ROUTINE HEALTH MAINTENANCE
     Dosage: UNK, qd
     Route: 048
  18. NEUPOGEN [Concomitant]
     Indication: NEUTROPENIA
     Dosage: UNK, bid
     Route: 058
  19. PROCRIT [Concomitant]
     Indication: ANAEMIA
     Dosage: 40000U, qw
     Route: 058
     Dates: start: 20120711
  20. ONDANSETRON [Concomitant]
     Indication: NAUSEA
     Dosage: UNK, prn
     Route: 048

REACTIONS (2)
  - Anaemia [Recovered/Resolved]
  - Anaemia [Not Recovered/Not Resolved]
